FAERS Safety Report 25723414 (Version 2)
Quarter: 2025Q3

REPORT INFORMATION
  Report Type: Spontaneous
  Country: US (occurrence: US)
  Receive Date: 20250825
  Receipt Date: 20250926
  Transmission Date: 20251021
  Serious: Yes (Other)
  Sender: MYLAN
  Company Number: US-MYLANLABS-2025M1071043

PATIENT
  Age: 75 Year
  Sex: Male
  Weight: 95.25 kg

DRUGS (12)
  1. LYRICA [Suspect]
     Active Substance: PREGABALIN
     Indication: Hypoaesthesia
     Dosage: 50 MILLIGRAM, BID (ONE CAPSULE TWICE DAILY)
     Dates: start: 20250807
  2. LYRICA [Suspect]
     Active Substance: PREGABALIN
     Indication: Paraesthesia
  3. LYRICA [Suspect]
     Active Substance: PREGABALIN
     Indication: Nerve injury
  4. ASCORBIC ACID [Concomitant]
     Active Substance: ASCORBIC ACID
     Dosage: UNK, QD (DAILY)
  5. ASPIRIN [Concomitant]
     Active Substance: ASPIRIN
     Dosage: UNK, QD (ONCE DAILY)
  6. LIPITOR [Concomitant]
     Active Substance: ATORVASTATIN CALCIUM
  7. BUMETANIDE [Concomitant]
     Active Substance: BUMETANIDE
  8. COREG [Concomitant]
     Active Substance: CARVEDILOL
  9. PLAVIX [Concomitant]
     Active Substance: CLOPIDOGREL BISULFATE
  10. DICLOFENAC SODIUM [Concomitant]
     Active Substance: DICLOFENAC SODIUM
  11. CYMBALTA [Concomitant]
     Active Substance: DULOXETINE HYDROCHLORIDE
  12. ACETAMINOPHEN [Concomitant]
     Active Substance: ACETAMINOPHEN
     Dosage: 2 DOSAGE FORM, QD (TAKEN AS TWO TABLETS DAILY)

REACTIONS (5)
  - Hallucination [Unknown]
  - Head discomfort [Unknown]
  - Nerve compression [Unknown]
  - Dizziness [Unknown]
  - Visual impairment [Unknown]

NARRATIVE: CASE EVENT DATE: 20250801
